FAERS Safety Report 21359271 (Version 1)
Quarter: 2022Q3

REPORT INFORMATION
  Report Type: Report from Study
  Country: CA (occurrence: CA)
  Receive Date: 20220921
  Receipt Date: 20220921
  Transmission Date: 20221026
  Serious: Yes (Hospitalization)
  Sender: FDA-Public Use
  Company Number: CA-NOVARTISPH-NVSC2022CA211844

PATIENT
  Sex: Female

DRUGS (5)
  1. HYRIMOZ [Suspect]
     Active Substance: ADALIMUMAB-ADAZ
     Indication: Crohn^s disease
     Dosage: 40 MG
     Route: 058
     Dates: start: 20210723
  2. HYRIMOZ [Suspect]
     Active Substance: ADALIMUMAB-ADAZ
     Dosage: UNK
     Route: 058
     Dates: start: 20220819
  3. HYRIMOZ [Suspect]
     Active Substance: ADALIMUMAB-ADAZ
     Dosage: UNK
     Route: 058
     Dates: start: 20220916
  4. PREDNISONE [Suspect]
     Active Substance: PREDNISONE
     Indication: Product used for unknown indication
     Dosage: 30 MG, QD (6 TABS) (AUGUST 3-8 HOSPITAL)
     Route: 065
     Dates: start: 20220803, end: 20220808
  5. PREDNISONE [Suspect]
     Active Substance: PREDNISONE
     Dosage: 30 MG, QD (SEPT 6-9 (MD PRESCRIBED)
     Route: 065
     Dates: start: 20220906, end: 20220909

REACTIONS (3)
  - Respiratory tract infection [Unknown]
  - Weight decreased [Unknown]
  - Nausea [Unknown]
